FAERS Safety Report 20341135 (Version 2)
Quarter: 2022Q1

REPORT INFORMATION
  Report Type: Spontaneous
  Country: GB (occurrence: GB)
  Receive Date: 20220117
  Receipt Date: 20220328
  Transmission Date: 20220423
  Serious: Yes (Life-Threatening, Hospitalization)
  Sender: FDA-Public Use
  Company Number: GB-TASMAN PHARMA, INC.-2022TSM00002

PATIENT
  Age: 37 Year
  Sex: Male

DRUGS (15)
  1. CLOZAPINE [Suspect]
     Active Substance: CLOZAPINE
     Indication: Schizophrenia
     Dosage: INITIAL DOSING NOT REPORTED
     Route: 065
     Dates: start: 2009
  2. CLOZAPINE [Suspect]
     Active Substance: CLOZAPINE
     Dosage: 200 MG DAILY AT 0800 HOURS AND 700 MG DAILY AT 2000 HOURSUNK
  3. EPINEPHRINE [Suspect]
     Active Substance: EPINEPHRINE
     Dosage: 500 ?G IN DIVIDED INTRAVENOUS BOLUSES
     Route: 042
  4. EPINEPHRINE [Suspect]
     Active Substance: EPINEPHRINE
     Dosage: 0.19 ?G/KG/MINUNK
     Route: 042
  5. EPINEPHRINE [Suspect]
     Active Substance: EPINEPHRINE
     Dosage: 0.06 ?G/KG/MIN
     Route: 042
  6. AMISULPRIDE [Concomitant]
     Active Substance: AMISULPRIDE
     Route: 065
  7. LITHIUM [Concomitant]
     Active Substance: LITHIUM
     Route: 065
  8. MACROGEL [Concomitant]
     Route: 065
  9. SENNA [Concomitant]
     Active Substance: SENNA LEAF\SENNOSIDES\SENNOSIDES A AND B
     Route: 065
  10. CRYSTALLOID FLUID [Concomitant]
     Dosage: TOTAL DOSE, 19 L
     Route: 065
  11. NOREPINEPHRINE [Concomitant]
     Active Substance: NOREPINEPHRINE
     Dosage: MAXIMUM DOSES OF 4.3 ?G/KG/MIN OF NOREPINEPHRINE
     Route: 042
  12. NOREPINEPHRINE [Concomitant]
     Active Substance: NOREPINEPHRINE
     Dosage: 2.3 ?G/KG/MINUNK
     Route: 042
  13. NOREPINEPHRINE [Concomitant]
     Active Substance: NOREPINEPHRINE
     Dosage: 1.08 ?G/KG/MIN
     Route: 042
  14. VASOPRESSIN [Concomitant]
     Active Substance: VASOPRESSIN
     Dosage: 5 UNITS/HOUR
  15. VASOPRESSIN [Concomitant]
     Active Substance: VASOPRESSIN
     Dosage: 6 UNITS/HOUR
     Route: 065

REACTIONS (4)
  - Drug interaction [Recovered/Resolved]
  - Compartment syndrome [Recovered/Resolved]
  - Ileus paralytic [Recovered/Resolved]
  - Hypotension [Recovered/Resolved]
